FAERS Safety Report 11516204 (Version 1)
Quarter: 2015Q3

REPORT INFORMATION
  Report Type: Spontaneous
  Country: FR (occurrence: FR)
  Receive Date: 20150917
  Receipt Date: 20150917
  Transmission Date: 20151125
  Serious: Yes (Hospitalization, Other)
  Sender: FDA-Public Use
  Company Number: FR-BRISTOL-MYERS SQUIBB COMPANY-BMS-2015-060784

PATIENT
  Age: 71 Year
  Sex: Male

DRUGS (1)
  1. COUMADINE [Suspect]
     Active Substance: WARFARIN SODIUM
     Indication: PRODUCT USED FOR UNKNOWN INDICATION
     Dosage: UNK
     Route: 048
     Dates: end: 20130321

REACTIONS (9)
  - International normalised ratio [Unknown]
  - Packed red blood cell transfusion [Unknown]
  - Heart injury [Unknown]
  - General physical health deterioration [Unknown]
  - Overdose [Unknown]
  - Rectal haemorrhage [Recovered/Resolved]
  - Acute kidney injury [Unknown]
  - Melaena [Recovered/Resolved]
  - Anaemia [Recovered/Resolved]

NARRATIVE: CASE EVENT DATE: 20130321
